FAERS Safety Report 19289079 (Version 1)
Quarter: 2021Q2

REPORT INFORMATION
  Report Type: Report from Study
  Country: CR (occurrence: CR)
  Receive Date: 20210521
  Receipt Date: 20210521
  Transmission Date: 20210717
  Serious: Yes (Other)
  Sender: FDA-Public Use
  Company Number: NVSC2021CR110497

PATIENT
  Age: 40 Year
  Sex: Male

DRUGS (2)
  1. CO?DIOVAN [Suspect]
     Active Substance: HYDROCHLOROTHIAZIDE\VALSARTAN
     Indication: PRODUCT USED FOR UNKNOWN INDICATION
     Dosage: UNK (160/12.5 MG)
     Route: 065
     Dates: start: 20210315
  2. EXFORGE HCT [Suspect]
     Active Substance: AMLODIPINE BESYLATE\HYDROCHLOROTHIAZIDE\VALSARTAN
     Indication: PRODUCT USED FOR UNKNOWN INDICATION
     Dosage: UNK (5/160/12.5 MG)
     Route: 065

REACTIONS (2)
  - Drug ineffective [Unknown]
  - Diabetes mellitus [Unknown]
